FAERS Safety Report 9507728 (Version 2)
Quarter: 2013Q3

REPORT INFORMATION
  Report Type: Spontaneous
  Country: FR (occurrence: FR)
  Receive Date: 20130909
  Receipt Date: 20130909
  Transmission Date: 20140515
  Serious: Yes (Death, Congenital Anomaly)
  Sender: FDA-Public Use
  Company Number: FR-NOVOPROD-386901

PATIENT
  Sex: 0

DRUGS (4)
  1. VICTOZA [Suspect]
     Indication: TYPE 2 DIABETES MELLITUS
     Dosage: UNK
     Route: 064
     Dates: end: 201304
  2. DEPAKINE CHRONO [Suspect]
     Indication: EPILEPSY
     Route: 064
  3. METFORMINE [Suspect]
     Indication: TYPE 2 DIABETES MELLITUS
     Dosage: UNK
     Route: 064
     Dates: end: 201304
  4. INSULIN [Suspect]
     Dosage: UNK
     Route: 064
     Dates: start: 201304

REACTIONS (2)
  - Osteogenesis imperfecta [Fatal]
  - Foetal exposure during pregnancy [Unknown]
